FAERS Safety Report 11465759 (Version 1)
Quarter: 2015Q3

REPORT INFORMATION
  Report Type: Report from Study
  Country: US (occurrence: US)
  Receive Date: 20150907
  Receipt Date: 20150907
  Transmission Date: 20151125
  Serious: Yes (Congenital Anomaly)
  Sender: FDA-Public Use
  Company Number: US-PFIZER INC-2015287117

PATIENT
  Sex: Female
  Weight: 3.9 kg

DRUGS (3)
  1. CYCLOPROPANE [Concomitant]
     Active Substance: CYCLOPROPANE
     Indication: ANAESTHESIA
     Route: 064
  2. PHENYTOIN. [Suspect]
     Active Substance: PHENYTOIN
     Indication: GENERALISED TONIC-CLONIC SEIZURE
     Dosage: UNK
     Route: 064
  3. PHENOBARBITAL. [Concomitant]
     Active Substance: PHENOBARBITAL
     Indication: GENERALISED TONIC-CLONIC SEIZURE
     Dosage: UNK
     Route: 064

REACTIONS (3)
  - Coarctation of the aorta [Unknown]
  - Maternal exposure during pregnancy [Unknown]
  - Ventricular septal defect [Unknown]
